FAERS Safety Report 11820814 (Version 1)
Quarter: 2015Q4

REPORT INFORMATION
  Report Type: Spontaneous
  Country: US (occurrence: US)
  Receive Date: 20151210
  Receipt Date: 20151210
  Transmission Date: 20160305
  Serious: No
  Sender: FDA-Public Use
  Company Number: US-JNJFOC-20150717068

PATIENT
  Age: 52 Year
  Sex: Male

DRUGS (6)
  1. GARLIC OIL [Concomitant]
     Active Substance: GARLIC OIL
  2. OMEPRAZOLE. [Concomitant]
     Active Substance: OMEPRAZOLE
  3. IMBRUVICA [Suspect]
     Active Substance: IBRUTINIB
     Indication: CHRONIC MYELOID LEUKAEMIA
     Route: 048
     Dates: start: 201505
  4. TRICOR [Concomitant]
     Active Substance: FENOFIBRATE
  5. ANDROGEL [Concomitant]
     Active Substance: TESTOSTERONE
  6. MULTIVITAMINS [Concomitant]
     Active Substance: VITAMINS

REACTIONS (2)
  - Off label use [Unknown]
  - Headache [Unknown]

NARRATIVE: CASE EVENT DATE: 201505
